FAERS Safety Report 18755189 (Version 1)
Quarter: 2021Q1

REPORT INFORMATION
  Report Type: Spontaneous
  Country: US (occurrence: US)
  Receive Date: 20210118
  Receipt Date: 20210118
  Transmission Date: 20210419
  Serious: Yes (Death)
  Sender: FDA-Public Use
  Company Number: None

PATIENT
  Age: 86 Year
  Sex: Female
  Weight: 46.7 kg

DRUGS (1)
  1. BAMLANIVIMAB. [Suspect]
     Active Substance: BAMLANIVIMAB
     Indication: COVID-19
     Dosage: ?          OTHER FREQUENCY:ONCE;?
     Route: 041

REACTIONS (10)
  - Atrial fibrillation [None]
  - Gait disturbance [None]
  - Acute kidney injury [None]
  - Blood glucose increased [None]
  - Pulse absent [None]
  - Mental status changes [None]
  - Troponin I increased [None]
  - Blood creatinine increased [None]
  - Hypertension [None]
  - Cardiac failure [None]

NARRATIVE: CASE EVENT DATE: 20210112
